FAERS Safety Report 4688702-3 (Version None)
Quarter: 2005Q2

REPORT INFORMATION
  Report Type: 
  Country: None (occurrence: None)
  Receive Date: 20050613
  Receipt Date: 20050606
  Transmission Date: 20051028
  Serious: Yes (Hospitalization)
  Sender: FDA-Public Use
  Company Number: PHRM2005FR01736

PATIENT
  Age: 1 Day
  Sex: Male
  Weight: 2 kg

DRUGS (3)
  1. SANDIMMUNE [Suspect]
     Route: 064
  2. SOLUPRED [Suspect]
     Route: 064
  3. OXYTOCICS [Concomitant]
     Route: 064

REACTIONS (3)
  - DRUG EXPOSURE DURING PREGNANCY [None]
  - FOETAL GROWTH RETARDATION [None]
  - SMALL FOR DATES BABY [None]
